FAERS Safety Report 17577311 (Version 3)
Quarter: 2020Q2

REPORT INFORMATION
  Report Type: Report from Study
  Country: GB (occurrence: GB)
  Receive Date: 20200324
  Receipt Date: 20200407
  Transmission Date: 20200713
  Serious: Yes (Other)
  Sender: FDA-Public Use
  Company Number: GB-JNJFOC-20200320740

PATIENT
  Sex: Female

DRUGS (2)
  1. STELARA [Suspect]
     Active Substance: USTEKINUMAB
     Indication: CROHN^S DISEASE
     Route: 058
  2. STELARA [Suspect]
     Active Substance: USTEKINUMAB
     Route: 058

REACTIONS (5)
  - Ear infection [Not Recovered/Not Resolved]
  - Off label use [Unknown]
  - Product use issue [Unknown]
  - Pharyngitis [Not Recovered/Not Resolved]
  - Nasopharyngitis [Not Recovered/Not Resolved]
